FAERS Safety Report 5814651-0 (Version None)
Quarter: 2008Q3

REPORT INFORMATION
  Report Type: 
  Country: None (occurrence: None)
  Receive Date: 20080718
  Receipt Date: 20071211
  Transmission Date: 20090109
  Serious: No
  Sender: FDA-Public Use
  Company Number: US-KINGPHARMUSA00001-K200701602

PATIENT

DRUGS (2)
  1. LEVOXYL [Suspect]
     Indication: THYROID NEOPLASM
     Dosage: .05 MG, QD
     Route: 048
  2. LISINOPRIL [Suspect]
     Indication: BLOOD PRESSURE ABNORMAL
     Dosage: UNK, UNK
     Dates: start: 20050101

REACTIONS (1)
  - HEART RATE INCREASED [None]
